FAERS Safety Report 9347371 (Version 1)
Quarter: 2013Q2

REPORT INFORMATION
  Report Type: Report from Study
  Country: VE (occurrence: VE)
  Receive Date: 20130613
  Receipt Date: 20130613
  Transmission Date: 20140414
  Serious: Yes (Other)
  Sender: FDA-Public Use
  Company Number: VE-ABBOTT-13P-178-1103825-00

PATIENT
  Age: 45 Year
  Sex: Male

DRUGS (1)
  1. HUMIRA [Suspect]
     Indication: PROSTATIC SPECIFIC ANTIGEN
     Dosage: ONE PRE-FILLED SYRINGE EVERY 15 DAYS
     Route: 058
     Dates: start: 2011, end: 201302

REACTIONS (1)
  - Tuberculin test positive [Not Recovered/Not Resolved]
